FAERS Safety Report 14854715 (Version 1)
Quarter: 2018Q2

REPORT INFORMATION
  Report Type: Spontaneous
  Country: US (occurrence: US)
  Receive Date: 20180507
  Receipt Date: 20180507
  Transmission Date: 20180711
  Serious: Yes (Other)
  Sender: FDA-Public Use
  Company Number: US-DENDREON PHARMACEUTICALS LLC-2018DEN000202

PATIENT

DRUGS (4)
  1. ABIRATERONE ACETATE W/PREDNISOLONE [Concomitant]
  2. ARANESP [Concomitant]
     Active Substance: DARBEPOETIN ALFA
  3. XGEVA [Concomitant]
     Active Substance: DENOSUMAB
  4. PROVENGE [Suspect]
     Active Substance: SIPULEUCEL-T
     Dosage: UNK
     Route: 042
     Dates: start: 20180412, end: 20180412

REACTIONS (1)
  - Fistula [Unknown]

NARRATIVE: CASE EVENT DATE: 201804
